FAERS Safety Report 7760573-8 (Version None)
Quarter: 2011Q3

REPORT INFORMATION
  Report Type: 
  Country: None (occurrence: None)
  Receive Date: 20110919
  Receipt Date: 20110908
  Transmission Date: 20111222
  Serious: Yes (Death)
  Sender: FDA-Public Use
  Company Number: US-ACTELION-A-US2011-53249

PATIENT

DRUGS (19)
  1. MESALAMINE [Concomitant]
  2. PRILOSEC [Concomitant]
  3. DOCUSATE [Concomitant]
  4. SERTRALINE HYDROCHLORIDE [Concomitant]
  5. FUROSEMIDE [Concomitant]
  6. GABAPENTIN [Concomitant]
  7. OXYCODONE HCL [Concomitant]
  8. TRACLEER [Suspect]
     Indication: PULMONARY ARTERIAL HYPERTENSION
     Dosage: 125 MG, BID
     Route: 048
     Dates: start: 20030101
  9. AMITIPTYLINE [Concomitant]
  10. ASPIRIN [Concomitant]
  11. CILOSTAZOL [Concomitant]
  12. FERROUS GLUCONATE [Concomitant]
  13. POTASSIUM CHLORIDE [Concomitant]
  14. PRAVASTATIN [Concomitant]
  15. DULOXETIME HYDROCHLORIDE [Concomitant]
  16. LORTAB [Concomitant]
  17. METOLAZONE [Concomitant]
  18. SENNOSIDE [Concomitant]
  19. CALCIUM WITH VITAMIN D [Concomitant]

REACTIONS (4)
  - ASTHENIA [None]
  - PULMONARY ARTERIAL HYPERTENSION [None]
  - DISEASE PROGRESSION [None]
  - CEREBRAL HAEMORRHAGE [None]
